FAERS Safety Report 23345778 (Version 1)
Quarter: 2023Q4

REPORT INFORMATION
  Report Type: Report from Study
  Country: US (occurrence: US)
  Receive Date: 20231228
  Receipt Date: 20231228
  Transmission Date: 20240110
  Serious: Yes (Hospitalization)
  Sender: FDA-Public Use
  Company Number: US-Eisai-EC-2023-153693

PATIENT
  Age: 70 Year
  Sex: Female
  Weight: 79 kg

DRUGS (15)
  1. LENVIMA [Suspect]
     Active Substance: LENVATINIB
     Indication: Renal cancer
     Route: 048
     Dates: start: 202311
  2. KEYTRUDA [Suspect]
     Active Substance: PEMBROLIZUMAB
     Indication: Product used for unknown indication
     Dosage: UNKNOWN DOSE AND FREQUENCY
     Dates: end: 20231210
  3. VITAMINS [Concomitant]
     Active Substance: VITAMINS
  4. HYDRALAZINE [Concomitant]
     Active Substance: HYDRALAZINE HYDROCHLORIDE
  5. ELIQUIS [Concomitant]
     Active Substance: APIXABAN
  6. ALLOPURINOL [Concomitant]
     Active Substance: ALLOPURINOL
  7. PANTOPRAZOLE [Concomitant]
     Active Substance: PANTOPRAZOLE
  8. METOLAZONE [Concomitant]
     Active Substance: METOLAZONE
  9. PROCHLORPERAZINE [Concomitant]
     Active Substance: PROCHLORPERAZINE
  10. DOXAZOSIN [Concomitant]
     Active Substance: DOXAZOSIN MESYLATE
  11. IRON [Concomitant]
     Active Substance: IRON
     Route: 042
  12. BACLOFEN [Concomitant]
     Active Substance: BACLOFEN
  13. LEVOTHYROXINE SODIUM [Concomitant]
     Active Substance: LEVOTHYROXINE SODIUM
  14. MONTELUKAST SODIUM [Concomitant]
     Active Substance: MONTELUKAST SODIUM
  15. CLOMITRAZOLE-BETAMETHAZONE [Concomitant]

REACTIONS (5)
  - Blood pressure increased [Recovering/Resolving]
  - Pneumonia [Unknown]
  - Fatigue [Unknown]
  - Pain in jaw [Unknown]
  - Mental impairment [Unknown]

NARRATIVE: CASE EVENT DATE: 20231101
